FAERS Safety Report 17589469 (Version 1)
Quarter: 2020Q1

REPORT INFORMATION
  Report Type: Spontaneous
  Country: US (occurrence: US)
  Receive Date: 20200325
  Receipt Date: 20200325
  Transmission Date: 20200409
  Serious: No
  Sender: FDA-Public Use
  Company Number: None

PATIENT
  Age: 53 Year
  Sex: Female

DRUGS (10)
  1. NALTREXONE [Concomitant]
     Active Substance: NALTREXONE
  2. PROPRANOLOL [Concomitant]
     Active Substance: PROPRANOLOL HYDROCHLORIDE
  3. OCALIVA [Suspect]
     Active Substance: OBETICHOLIC ACID
     Indication: PRODUCT USED FOR UNKNOWN INDICATION
     Dosage: ?          OTHER FREQUENCY:D;?
     Route: 048
     Dates: start: 20190205
  4. MONTELUKAST [Concomitant]
     Active Substance: MONTELUKAST SODIUM
  5. URSODIOL. [Concomitant]
     Active Substance: URSODIOL
  6. CETIRIZINE [Concomitant]
     Active Substance: CETIRIZINE HYDROCHLORIDE
  7. AMLODIPINE [Concomitant]
     Active Substance: AMLODIPINE BESYLATE
  8. DOXYCYCL [Concomitant]
  9. LEVOTHYROXIN [Concomitant]
     Active Substance: LEVOTHYROXINE
  10. OMEPRAZOLE. [Concomitant]
     Active Substance: OMEPRAZOLE

REACTIONS (4)
  - Pulmonary pain [None]
  - Chills [None]
  - Pain [None]
  - Pyrexia [None]

NARRATIVE: CASE EVENT DATE: 202003
